FAERS Safety Report 6192193-3 (Version None)
Quarter: 2009Q2

REPORT INFORMATION
  Report Type: 
  Country: None (occurrence: None)
  Receive Date: 20090515
  Receipt Date: 20090508
  Transmission Date: 20091009
  Serious: Yes (Other)
  Sender: FDA-Public Use
  Company Number: US-ASTRAZENECA-2009UW07914

PATIENT
  Age: 27880 Day
  Sex: Female
  Weight: 65.8 kg

DRUGS (14)
  1. NEXIUM [Suspect]
     Indication: PROPHYLAXIS AGAINST GASTROINTESTINAL ULCER
     Route: 048
  2. NEXIUM [Suspect]
     Indication: GASTROOESOPHAGEAL REFLUX DISEASE
     Route: 048
  3. CELEBREX [Concomitant]
     Indication: ARTHRITIS
  4. TIAZAC [Concomitant]
     Indication: HYPERTENSION
     Route: 048
  5. BENICAR [Concomitant]
     Route: 048
  6. LIPITOR [Concomitant]
     Route: 048
  7. DOXEPIN HCL [Concomitant]
  8. AMBIEN CR [Concomitant]
     Route: 048
  9. VITAMIN D [Concomitant]
  10. MAGNESIUM SULFATE [Concomitant]
  11. CALCIUM [Concomitant]
     Route: 048
  12. ASPIRIN [Concomitant]
     Route: 048
  13. MULTI-VITAMIN [Concomitant]
     Dosage: 1 TABLET DAILY
     Route: 048
  14. COQ 10 [Concomitant]

REACTIONS (5)
  - COLITIS ISCHAEMIC [None]
  - DRUG INEFFECTIVE [None]
  - DYSGEUSIA [None]
  - DYSPHAGIA [None]
  - HIATUS HERNIA [None]
